FAERS Safety Report 23858124 (Version 1)
Quarter: 2024Q2

REPORT INFORMATION
  Report Type: Spontaneous
  Country: FR (occurrence: FR)
  Receive Date: 20240515
  Receipt Date: 20240515
  Transmission Date: 20240716
  Serious: Yes (Hospitalization)
  Sender: FDA-Public Use
  Company Number: None

PATIENT
  Age: 54 Year
  Sex: Female
  Weight: 50 kg

DRUGS (4)
  1. LYRICA [Suspect]
     Active Substance: PREGABALIN
     Indication: Mental disorder
     Dosage: UNK
     Route: 048
     Dates: start: 202211
  2. DULOXETINE [Suspect]
     Active Substance: DULOXETINE
     Indication: Mental disorder
     Dosage: 60 MILLIGRAM, QD (60 MG/DAY)
     Route: 048
     Dates: start: 2022
  3. QUETIAPINE [Suspect]
     Active Substance: QUETIAPINE
     Indication: Mental disorder
     Dosage: UNK
     Route: 048
     Dates: start: 202211, end: 202309
  4. HALOPERIDOL [Suspect]
     Active Substance: HALOPERIDOL
     Indication: Mental disorder
     Dosage: UNK
     Route: 048
     Dates: start: 202211, end: 202312

REACTIONS (1)
  - Tardive dyskinesia [Not Recovered/Not Resolved]

NARRATIVE: CASE EVENT DATE: 20240301
